FAERS Safety Report 10756705 (Version 1)
Quarter: 2015Q1

REPORT INFORMATION
  Report Type: Spontaneous
  Country: US (occurrence: US)
  Receive Date: 20150202
  Receipt Date: 20150202
  Transmission Date: 20150721
  Serious: No
  Sender: FDA-Public Use
  Company Number: US-BAUSCH-SYM-2014-14704

PATIENT
  Sex: Female

DRUGS (1)
  1. XENAZINE [Suspect]
     Active Substance: TETRABENAZINE
     Indication: TARDIVE DYSKINESIA
     Route: 048
     Dates: start: 20100127

REACTIONS (5)
  - Decreased appetite [Unknown]
  - Hypersomnia [Unknown]
  - Confusional state [Unknown]
  - Memory impairment [Unknown]
  - Disturbance in attention [Unknown]
